FAERS Safety Report 9199466 (Version 1)
Quarter: 2013Q1

REPORT INFORMATION
  Report Type: Spontaneous
  Country: US (occurrence: US)
  Receive Date: 20130329
  Receipt Date: 20130329
  Transmission Date: 20140127
  Serious: No
  Sender: FDA-Public Use
  Company Number: US-009507513-1303USA013194

PATIENT
  Sex: Female

DRUGS (2)
  1. AZASITE [Suspect]
     Indication: OCULAR ROSACEA
     Dosage: ONE DROP IN EACH EYE ONCE DAILY
     Route: 047
  2. DOXYCYCLINE [Concomitant]

REACTIONS (7)
  - Visual impairment [Unknown]
  - Drug prescribing error [Unknown]
  - Incorrect dose administered [Unknown]
  - Drug dose omission [Unknown]
  - Accidental exposure to product [Unknown]
  - Off label use [Unknown]
  - Product quality issue [Unknown]
